FAERS Safety Report 18238932 (Version 10)
Quarter: 2022Q1

REPORT INFORMATION
  Report Type: Report from Study
  Country: US (occurrence: US)
  Receive Date: 20200907
  Receipt Date: 20220206
  Transmission Date: 20220423
  Serious: No
  Sender: FDA-Public Use
  Company Number: NVSC2020US243166

PATIENT
  Age: 48 Year
  Sex: Female

DRUGS (3)
  1. COSENTYX [Suspect]
     Active Substance: SECUKINUMAB
     Indication: Psoriasis
     Dosage: 300 MG (QW FOR 5 WEEKS THEN Q4W)
     Route: 058
  2. COSENTYX [Suspect]
     Active Substance: SECUKINUMAB
     Dosage: 300 MG, QMO
     Route: 058
  3. COSENTYX [Suspect]
     Active Substance: SECUKINUMAB
     Dosage: 300 MG, QMO
     Route: 030
     Dates: start: 20220112, end: 20220112

REACTIONS (13)
  - Stress [Unknown]
  - Crying [Unknown]
  - Pain [Unknown]
  - Dry mouth [Unknown]
  - Pain in extremity [Unknown]
  - Product packaging issue [Unknown]
  - Product distribution issue [Unknown]
  - Inappropriate schedule of product administration [Recovering/Resolving]
  - Gait disturbance [Unknown]
  - Bone pain [Unknown]
  - Psoriasis [Unknown]
  - Injection site bruising [Recovered/Resolved]
  - Injection site pain [Recovered/Resolved]

NARRATIVE: CASE EVENT DATE: 20210129
